FAERS Safety Report 12346373 (Version 1)
Quarter: 2016Q2

REPORT INFORMATION
  Report Type: Report from Study
  Country: JP (occurrence: JP)
  Receive Date: 20160509
  Receipt Date: 20160509
  Transmission Date: 20160815
  Serious: Yes (Other)
  Sender: FDA-Public Use
  Company Number: JP-BRISTOL-MYERS SQUIBB COMPANY-BMS-2015-005092

PATIENT
  Age: 65 Year
  Sex: Male

DRUGS (5)
  1. NIVOLUMAB [Suspect]
     Active Substance: NIVOLUMAB
     Dosage: 2 MG/KG, TOTAL
     Route: 065
     Dates: start: 20141224, end: 20141224
  2. NIVOLUMAB [Suspect]
     Active Substance: NIVOLUMAB
     Dosage: 2 MG/KG, TOTAL
     Route: 065
     Dates: start: 20160210, end: 20160210
  3. NIVOLUMAB [Suspect]
     Active Substance: NIVOLUMAB
     Indication: MALIGNANT MELANOMA
     Dosage: 120 MG,
     Route: 065
     Dates: start: 20141218, end: 20141218
  4. NIVOLUMAB [Suspect]
     Active Substance: NIVOLUMAB
     Dosage: 2 MG/KG, TOTAL
     Route: 065
     Dates: start: 20150312, end: 20150312
  5. NIVOLUMAB [Suspect]
     Active Substance: NIVOLUMAB
     Dosage: 2 MG/KG, TOTAL
     Route: 065
     Dates: start: 20141224, end: 20141224

REACTIONS (5)
  - Embolism [Not Recovered/Not Resolved]
  - Arrhythmia [Recovered/Resolved]
  - Hypothyroidism [Recovering/Resolving]
  - Erythema [Recovered/Resolved]
  - Dyspnoea [Recovered/Resolved]

NARRATIVE: CASE EVENT DATE: 20150108
